FAERS Safety Report 6794549-4 (Version None)
Quarter: 2010Q2

REPORT INFORMATION
  Report Type: 
  Country: None (occurrence: None)
  Receive Date: 20100625
  Receipt Date: 20100613
  Transmission Date: 20101027
  Serious: Yes (Other)
  Sender: FDA-Public Use
  Company Number: CN-PFIZER INC-2010072531

PATIENT
  Age: 25 Year
  Sex: Male

DRUGS (1)
  1. ZITHROMAX [Suspect]
     Indication: RESPIRATORY TRACT INFLAMMATION
     Dosage: 500 MG, 1X/DAY
     Route: 042
     Dates: start: 20100607, end: 20100609

REACTIONS (1)
  - PHLEBITIS [None]
